FAERS Safety Report 8802650 (Version 1)
Quarter: 2012Q4

REPORT INFORMATION
  Report Type: 
  Country: US (occurrence: US)
  Receive Date: 20120921
  Receipt Date: 20120921
  Transmission Date: 20130627
  Serious: Yes (Hospitalization)
  Sender: FDA-Public Use
  Company Number: US-ROCHE-1120304

PATIENT
  Age: 45 Year
  Sex: Female

DRUGS (5)
  1. KLONOPIN [Suspect]
     Indication: PANIC ATTACK
     Route: 048
  2. KLONOPIN [Suspect]
     Route: 065
  3. KLONOPIN [Suspect]
     Route: 065
  4. KLONOPIN [Suspect]
     Route: 065
  5. XANAX [Suspect]
     Indication: PRODUCT USED FOR UNKNOWN INDICATION

REACTIONS (8)
  - Drug withdrawal syndrome [Not Recovered/Not Resolved]
  - Apparent death [Unknown]
  - Agnosia [Unknown]
  - Drug dependence [Unknown]
  - Hallucination [Unknown]
  - Fear [Unknown]
  - Anxiety [Not Recovered/Not Resolved]
  - Drug ineffective [Unknown]
